FAERS Safety Report 23436081 (Version 4)
Quarter: 2024Q1

REPORT INFORMATION
  Report Type: Spontaneous
  Country: PL (occurrence: PL)
  Receive Date: 20240124
  Receipt Date: 20240323
  Transmission Date: 20240410
  Serious: Yes (Death, Life-Threatening, Hospitalization, Other)
  Sender: FDA-Public Use
  Company Number: PL-AUROBINDO-AUR-APL-2024-000912

PATIENT
  Age: 12 Year
  Sex: Female

DRUGS (41)
  1. BUDESONIDE [Suspect]
     Active Substance: BUDESONIDE
     Indication: Respiratory syncytial virus bronchiolitis
     Dosage: UNK UNK, FOUR TIMES/DAY
  2. IMATINIB [Suspect]
     Active Substance: IMATINIB
     Indication: Acute lymphocytic leukaemia
     Dosage: 340 MG/M2 (DAY 15)
     Route: 065
  3. DEXAMETHASONE [Suspect]
     Active Substance: DEXAMETHASONE
     Indication: Respiratory syncytial virus bronchiolitis
     Dosage: UNK, FOUR TIMES/DAY
     Route: 065
     Dates: start: 202112
  4. DEXAMETHASONE [Suspect]
     Active Substance: DEXAMETHASONE
     Indication: Acute lymphocytic leukaemia
  5. DEXAMETHASONE [Suspect]
     Active Substance: DEXAMETHASONE
     Indication: Respiratory syncytial virus infection
  6. METHOTREXATE [Suspect]
     Active Substance: METHOTREXATE
     Indication: Acute lymphocytic leukaemia
     Dosage: 5 MG/M2 (THE FIRST DAY OF BLOCK 1)
     Route: 065
  7. CYCLOPHOSPHAMIDE [Suspect]
     Active Substance: CYCLOPHOSPHAMIDE
     Indication: Acute lymphocytic leukaemia
     Dosage: 3 DOSAGE FORM
     Route: 065
  8. MERCAPTOPURINE [Suspect]
     Active Substance: MERCAPTOPURINE
     Indication: Acute lymphocytic leukaemia
     Dosage: UNK
     Route: 065
  9. ETOPOSIDE [Suspect]
     Active Substance: ETOPOSIDE
     Indication: Acute lymphocytic leukaemia
     Dosage: UNK
     Route: 065
  10. IFOSFAMIDE [Suspect]
     Active Substance: IFOSFAMIDE
     Indication: Acute lymphocytic leukaemia
     Dosage: UNK
     Route: 065
  11. CYTARABINE [Suspect]
     Active Substance: CYTARABINE
     Indication: Acute lymphocytic leukaemia
     Dosage: UNK
     Route: 065
  12. FILGRASTIM [Suspect]
     Active Substance: FILGRASTIM
     Indication: Acute lymphocytic leukaemia
     Dosage: UNK
     Route: 065
  13. PEGASPARGASE [Suspect]
     Active Substance: PEGASPARGASE
     Indication: Acute lymphocytic leukaemia
     Dosage: UNK
     Route: 065
  14. DEXRAZOXANE HYDROCHLORIDE [Suspect]
     Active Substance: DEXRAZOXANE HYDROCHLORIDE
     Indication: Acute lymphocytic leukaemia
     Dosage: UNK
     Route: 065
  15. PREDNISONE [Suspect]
     Active Substance: PREDNISONE
     Indication: Respiratory syncytial virus bronchiolitis
     Dosage: UNK
     Route: 065
  16. LEUCOVORIN CALCIUM [Suspect]
     Active Substance: LEUCOVORIN CALCIUM
     Indication: Respiratory syncytial virus bronchiolitis
     Dosage: UNK
     Route: 065
  17. LEUCOVORIN CALCIUM [Suspect]
     Active Substance: LEUCOVORIN CALCIUM
     Indication: Acute lymphocytic leukaemia
  18. CLARITHROMYCIN [Suspect]
     Active Substance: CLARITHROMYCIN
     Indication: Respiratory syncytial virus infection
     Dosage: UNK
     Route: 065
     Dates: start: 202112
  19. DOXORUBICIN [Suspect]
     Active Substance: DOXORUBICIN
     Indication: Respiratory syncytial virus bronchiolitis
     Dosage: UNK
     Route: 065
  20. DOXORUBICIN [Suspect]
     Active Substance: DOXORUBICIN
     Indication: Acute lymphocytic leukaemia
  21. DAUNORUBICIN HYDROCHLORIDE [Suspect]
     Active Substance: DAUNORUBICIN HYDROCHLORIDE
     Indication: Respiratory syncytial virus bronchiolitis
     Dosage: UNK
     Route: 065
  22. DAUNORUBICIN HYDROCHLORIDE [Suspect]
     Active Substance: DAUNORUBICIN HYDROCHLORIDE
     Indication: Acute lymphocytic leukaemia
  23. THIOGUANINE ANHYDROUS [Suspect]
     Active Substance: THIOGUANINE ANHYDROUS
     Indication: Respiratory syncytial virus bronchiolitis
     Dosage: UNK
     Route: 065
  24. THIOGUANINE ANHYDROUS [Suspect]
     Active Substance: THIOGUANINE ANHYDROUS
     Indication: Acute lymphocytic leukaemia
  25. METHYLPREDNISOLONE [Suspect]
     Active Substance: METHYLPREDNISOLONE
     Indication: Respiratory syncytial virus bronchiolitis
     Dosage: UNK
     Route: 065
  26. METHYLPREDNISOLONE [Suspect]
     Active Substance: METHYLPREDNISOLONE
     Indication: Acute lymphocytic leukaemia
  27. CALASPARGASE PEGOL [Suspect]
     Active Substance: CALASPARGASE PEGOL
     Indication: Respiratory syncytial virus bronchiolitis
     Dosage: UNK, QID
     Route: 065
  28. CALASPARGASE PEGOL [Suspect]
     Active Substance: CALASPARGASE PEGOL
     Indication: Acute lymphocytic leukaemia
  29. HYDROCORTISONE [Suspect]
     Active Substance: HYDROCORTISONE
     Indication: Respiratory syncytial virus bronchiolitis
     Dosage: UNK
     Route: 065
  30. HYDROCORTISONE [Suspect]
     Active Substance: HYDROCORTISONE
     Indication: Acute lymphocytic leukaemia
  31. OXYGEN [Suspect]
     Active Substance: OXYGEN
     Indication: Respiratory failure
     Dosage: UNK 5-6 LITERS PER MINUTE
     Route: 065
     Dates: start: 2021
  32. OXYGEN [Suspect]
     Active Substance: OXYGEN
     Dosage: 2 LITERS PER MINUTE
     Route: 065
     Dates: start: 202112
  33. MEROPENEM [Suspect]
     Active Substance: MEROPENEM
     Indication: Respiratory syncytial virus infection
     Dosage: UNK
     Route: 065
     Dates: start: 202112
  34. PREDNISOLONE [Suspect]
     Active Substance: PREDNISOLONE
     Indication: Acute lymphocytic leukaemia
     Dosage: UNK
     Route: 065
  35. VINCRISTINE [Suspect]
     Active Substance: VINCRISTINE
     Indication: Acute lymphocytic leukaemia
     Dosage: UNK
     Route: 065
  36. HUMAN IMMUNOGLOBULIN G [Suspect]
     Active Substance: HUMAN IMMUNOGLOBULIN G
     Indication: Respiratory syncytial virus infection
     Dosage: UNK
     Route: 042
     Dates: start: 202112
  37. HUMAN IMMUNOGLOBULIN G [Suspect]
     Active Substance: HUMAN IMMUNOGLOBULIN G
     Indication: Secondary immunodeficiency
  38. CYCLOPHOSPHAMIDE [Concomitant]
     Active Substance: CYCLOPHOSPHAMIDE
     Indication: Product used for unknown indication
     Dosage: UNK
     Route: 065
  39. METHOTREXATE [Concomitant]
     Active Substance: METHOTREXATE
     Indication: Product used for unknown indication
     Dosage: UNK
     Route: 065
  40. VANCOMYCIN [Concomitant]
     Active Substance: VANCOMYCIN
     Indication: Product used for unknown indication
     Dosage: UNK
     Route: 065
     Dates: start: 202112
  41. BUDESONIDE [Concomitant]
     Active Substance: BUDESONIDE
     Indication: Respiratory syncytial virus infection
     Dosage: UNK, ONCE A DAY
     Dates: start: 202112

REACTIONS (22)
  - Infection [Fatal]
  - Circulatory collapse [Fatal]
  - Respiratory syncytial virus infection [Fatal]
  - Clostridium difficile infection [Fatal]
  - Polyneuropathy [Fatal]
  - Renal failure [Fatal]
  - Gastrointestinal haemorrhage [Fatal]
  - Pancytopenia [Fatal]
  - Electrolyte imbalance [Fatal]
  - Hepatotoxicity [Fatal]
  - Hypertriglyceridaemia [Fatal]
  - Hypoalbuminaemia [Fatal]
  - Coagulopathy [Fatal]
  - Cachexia [Unknown]
  - Respiratory failure [Unknown]
  - Stomatitis [Unknown]
  - Drug ineffective [Unknown]
  - Liver disorder [Unknown]
  - Therapy partial responder [Unknown]
  - Therapy non-responder [Unknown]
  - Product use issue [Unknown]
  - Product use in unapproved indication [Unknown]

NARRATIVE: CASE EVENT DATE: 20211201
